FAERS Safety Report 4431052-0 (Version None)
Quarter: 2004Q3

REPORT INFORMATION
  Report Type: 
  Country: None (occurrence: None)
  Receive Date: 20040816
  Receipt Date: 20040729
  Transmission Date: 20050211
  Serious: Yes (Hospitalization)
  Sender: FDA-Public Use
  Company Number: F01200400373

PATIENT
  Age: 49 Year
  Sex: Male

DRUGS (5)
  1. (OXALIPLATIN) - SOLUTION - 130 MG/M2 [Suspect]
     Indication: COLORECTAL CANCER METASTATIC
     Dosage: 260 MG Q3W INTRAVENOUS NOS
     Route: 042
     Dates: start: 20040211, end: 20040211
  2. CAPECITABINE - TABLET - 1000 MG/M2 [Suspect]
     Dosage: 1000 MG/M2 TID ORAL
     Route: 048
     Dates: end: 20040211
  3. IMODIUM [Concomitant]
  4. LOMOTIL [Concomitant]
  5. WARFARIN SODIUM [Concomitant]

REACTIONS (1)
  - ENTERITIS [None]
